FAERS Safety Report 6000246-5 (Version None)
Quarter: 2008Q4

REPORT INFORMATION
  Report Type: 
  Country: None (occurrence: None)
  Receive Date: 20081211
  Receipt Date: 20081211
  Transmission Date: 20090506
  Serious: Yes (Other)
  Sender: FDA-Public Use
  Company Number: None

PATIENT
  Age: 69 Year
  Sex: Male
  Weight: 88.9 kg

DRUGS (14)
  1. LORAZEPAM [Suspect]
     Indication: ANXIETY
     Dosage: 2MG/ML PRN IV
     Route: 042
     Dates: start: 20081208, end: 20081209
  2. HALOPERIDOL [Concomitant]
  3. DOBUTAMINE HCL [Concomitant]
  4. HEPARIN [Concomitant]
  5. SIMVASTATIN [Concomitant]
  6. DIGOXIN [Concomitant]
  7. DOPAMINE HCL [Concomitant]
  8. ONDANSETRON [Concomitant]
  9. MAGNESIUM HYDROXIDE TAB [Concomitant]
  10. DOCUSATE [Concomitant]
  11. ENOXAPARIN SODIUM [Concomitant]
  12. ESOMEPRAZOLE MAGNESIUM [Concomitant]
  13. LEVOTHYROXINE SODIUM [Concomitant]
  14. NOREPINEPHRINE [Concomitant]

REACTIONS (6)
  - ABNORMAL BEHAVIOUR [None]
  - AGGRESSION [None]
  - AGITATION [None]
  - ANXIETY [None]
  - CONFUSIONAL STATE [None]
  - SPEECH DISORDER [None]
